FAERS Safety Report 9667736 (Version 1)
Quarter: 2013Q4

REPORT INFORMATION
  Report Type: Spontaneous
  Country: US (occurrence: US)
  Receive Date: 20131104
  Receipt Date: 20131104
  Transmission Date: 20140711
  Serious: No
  Sender: FDA-Public Use
  Company Number: US-ENDO PHARMACEUTICALS INC.-PRED20110010

PATIENT
  Age: 72 Year
  Sex: Male

DRUGS (2)
  1. PREDNISONE [Suspect]
     Indication: BACK DISORDER
     Dosage: UNK
     Route: 065
     Dates: start: 20110419
  2. LANTUS SOLOSTAR [Concomitant]
     Indication: TYPE 2 DIABETES MELLITUS
     Dosage: 36 UNITS
     Route: 058

REACTIONS (1)
  - Blood glucose increased [Not Recovered/Not Resolved]
